FAERS Safety Report 9527914 (Version 1)
Quarter: 2013Q1

REPORT INFORMATION
  Report Type: Spontaneous
  Country: US (occurrence: None)
  Receive Date: 20130314
  Receipt Date: 20130314
  Transmission Date: 20140127
  Serious: No
  Sender: FDA-Public Use
  Company Number: 1301USA001297

PATIENT
  Age: 57 Year
  Sex: Male
  Weight: 83.9 kg

DRUGS (10)
  1. VICTRELIS [Suspect]
     Route: 048
  2. PEGASYS [Suspect]
     Route: 058
  3. RIBAPAK [Suspect]
     Dosage: 800/DAY, ORAL
     Route: 048
  4. CHOLECALCIFEROL (CHOLECALCIFEROL) CAPSULE [Concomitant]
  5. LISINOPRIL (LISINOPRIL) TABLET [Concomitant]
  6. LEXAPRO (ESCITALOPRAM OXALATE) TABLETS [Concomitant]
  7. XANAX (ALPRAZOLAM) TABLET [Concomitant]
  8. LOVAZA (OMEGA-3 ACID ETHYL ESTERS) CAPSULES [Concomitant]
  9. PROTONIX (PANTOPRAZOLE SODIUM) TABLET [Concomitant]
  10. ZINC (UNSPECIFIED) (ZINC (UNSPECIFIED)) [Concomitant]

REACTIONS (1)
  - Headache [None]
